FAERS Safety Report 12991959 (Version 1)
Quarter: 2016Q4

REPORT INFORMATION
  Report Type: Spontaneous
  Country: US (occurrence: US)
  Receive Date: 20161201
  Receipt Date: 20161201
  Transmission Date: 20170207
  Serious: Yes (Other)
  Sender: FDA-Public Use
  Company Number: US-SAOL THERAPEUTICS-2016SAO01106

PATIENT
  Age: 59 Year
  Sex: Female

DRUGS (4)
  1. QUTENZA [Suspect]
     Active Substance: CAPSAICIN
     Route: 062
  2. FENTANYL. [Suspect]
     Active Substance: FENTANYL
     Route: 037
  3. BACLOFEN. [Suspect]
     Active Substance: BACLOFEN
     Route: 037
  4. DILAUDID [Suspect]
     Active Substance: HYDROMORPHONE HYDROCHLORIDE
     Route: 037

REACTIONS (1)
  - Neuropathy peripheral [Unknown]
